FAERS Safety Report 8432894-7 (Version None)
Quarter: 2012Q2

REPORT INFORMATION
  Report Type: 
  Country: None (occurrence: None)
  Receive Date: 20120613
  Receipt Date: 20120605
  Transmission Date: 20120825
  Serious: Yes (Hospitalization, Other)
  Sender: FDA-Public Use
  Company Number: FI-ROCHE-1058698

PATIENT
  Sex: Male

DRUGS (7)
  1. ARTHRYL [Concomitant]
     Route: 048
  2. FOLVITE [Concomitant]
     Route: 048
  3. AVASTIN [Suspect]
     Indication: AGE-RELATED MACULAR DEGENERATION
     Route: 050
     Dates: start: 20120323, end: 20120323
  4. METHOTREXATE [Concomitant]
     Route: 048
  5. OFTAQUIX [Concomitant]
     Route: 047
     Dates: start: 20120322, end: 20120326
  6. CALCIUM CARBONATE [Concomitant]
     Route: 048
  7. VALPROIC ACID [Concomitant]
     Route: 048

REACTIONS (2)
  - ENDOPHTHALMITIS [None]
  - TRANSMISSION OF AN INFECTIOUS AGENT VIA A MEDICINAL PRODUCT [None]
